FAERS Safety Report 9239446 (Version 1)
Quarter: 2013Q2

REPORT INFORMATION
  Report Type: Spontaneous
  Country: US (occurrence: US)
  Receive Date: 20130418
  Receipt Date: 20130418
  Transmission Date: 20140414
  Serious: No
  Sender: FDA-Public Use
  Company Number: US-PFIZER INC-2013062007

PATIENT
  Sex: 0

DRUGS (1)
  1. ADVIL [Suspect]
     Dosage: 200 MG, UNK

REACTIONS (4)
  - Drug ineffective [Unknown]
  - Dysgeusia [Unknown]
  - Product taste abnormal [Unknown]
  - Product odour abnormal [Unknown]
